FAERS Safety Report 21659460 (Version 1)
Quarter: 2022Q4

REPORT INFORMATION
  Report Type: Spontaneous
  Country: CZ (occurrence: CZ)
  Receive Date: 20221129
  Receipt Date: 20221129
  Transmission Date: 20230113
  Serious: Yes (Other)
  Sender: FDA-Public Use
  Company Number: CZ-BRISTOL-MYERS SQUIBB COMPANY-2022-143127

PATIENT
  Age: 46 Year
  Sex: Female
  Weight: 38 kg

DRUGS (1)
  1. OPDIVO [Suspect]
     Active Substance: NIVOLUMAB
     Indication: Oesophageal squamous cell carcinoma
     Route: 065
     Dates: start: 20220425

REACTIONS (2)
  - Anal haemorrhage [Unknown]
  - Ileus [Unknown]
